FAERS Safety Report 16895200 (Version 1)
Quarter: 2019Q4

REPORT INFORMATION
  Report Type: Spontaneous
  Country: US (occurrence: US)
  Receive Date: 20191008
  Receipt Date: 20191008
  Transmission Date: 20200122
  Serious: No
  Sender: FDA-Public Use
  Company Number: US-INDIVIOR US-INDV-116454-2018

PATIENT
  Age: 56 Year
  Sex: Male

DRUGS (3)
  1. SUBOXONE [Suspect]
     Active Substance: BUPRENORPHINE HYDROCHLORIDE\NALOXONE HYDROCHLORIDE
     Dosage: TAKING 16TH OF AN 8MG FILM
     Route: 060
     Dates: start: 2018
  2. SUBOXONE [Suspect]
     Active Substance: BUPRENORPHINE HYDROCHLORIDE\NALOXONE HYDROCHLORIDE
     Dosage: TAKING THREE 8MG FILMS A DAY
     Route: 060
     Dates: start: 2018, end: 2018
  3. SUBOXONE [Suspect]
     Active Substance: BUPRENORPHINE HYDROCHLORIDE\NALOXONE HYDROCHLORIDE
     Indication: BACK PAIN
     Dosage: 8 MG, QD
     Route: 060
     Dates: start: 2018, end: 2018

REACTIONS (10)
  - Off label use [Not Recovered/Not Resolved]
  - Muscle twitching [Unknown]
  - Wrong technique in product usage process [Not Recovered/Not Resolved]
  - Drug dependence [Not Recovered/Not Resolved]
  - Intentional underdose [Not Recovered/Not Resolved]
  - Back pain [Recovered/Resolved]
  - Insomnia [Unknown]
  - Drug withdrawal syndrome [Not Recovered/Not Resolved]
  - Intentional product use issue [Recovered/Resolved]
  - Tremor [Unknown]

NARRATIVE: CASE EVENT DATE: 2018
